FAERS Safety Report 9527815 (Version 1)
Quarter: 2013Q1

REPORT INFORMATION
  Report Type: Spontaneous
  Country: US (occurrence: None)
  Receive Date: 20130314
  Receipt Date: 20130314
  Transmission Date: 20140127
  Serious: No
  Sender: FDA-Public Use
  Company Number: 1211USA008392

PATIENT
  Sex: Male

DRUGS (3)
  1. RIBAVIRIN [Suspect]
     Indication: HEPATITIS C
     Dates: start: 20121109
  2. VICTRELIS [Suspect]
     Indication: HEPATITIS C
     Route: 048
     Dates: start: 20121208
  3. PEGASYS [Suspect]
     Indication: HEPATITIS C
     Dates: start: 20121109

REACTIONS (10)
  - Pruritus [None]
  - Pruritus [None]
  - Myalgia [None]
  - Headache [None]
  - Nausea [None]
  - Diarrhoea [None]
  - Rash [None]
  - Alopecia [None]
  - Fatigue [None]
  - Dysgeusia [None]
